FAERS Safety Report 7904355-2 (Version None)
Quarter: 2011Q4

REPORT INFORMATION
  Report Type: 
  Country: None (occurrence: None)
  Receive Date: 20111109
  Receipt Date: 20111107
  Transmission Date: 20120403
  Serious: Yes (Hospitalization)
  Sender: FDA-Public Use
  Company Number: BR-PFIZER INC-2011260556

PATIENT
  Age: 37 Year
  Sex: Male

DRUGS (7)
  1. WARFARIN SODIUM [Concomitant]
     Dosage: 5 MG, DAILY
  2. FUROSEMIDE [Concomitant]
     Dosage: 40 MG, 2X/DAY
  3. SPIRONOLACTONE [Suspect]
     Dosage: 25 MG, DAILY
  4. DIGOXIN [Concomitant]
     Dosage: 0.25 MG, DAILY
  5. METOPROLOL SUCCINATE [Concomitant]
     Dosage: 50 MG, UNK
  6. ATACAND [Concomitant]
     Dosage: 16 MG, DAILY
  7. COUMADIN [Concomitant]
     Dosage: 1 MG, DAILY

REACTIONS (2)
  - CARDIAC FAILURE [None]
  - ACUTE PULMONARY OEDEMA [None]
